FAERS Safety Report 24446123 (Version 2)
Quarter: 2025Q4

REPORT INFORMATION
  Report Type: Spontaneous
  Country: US (occurrence: US)
  Receive Date: 20241016
  Receipt Date: 20251223
  Transmission Date: 20260118
  Serious: Yes (Other)
  Sender: ABBVIE
  Company Number: US-ABBVIE-5954600

PATIENT
  Age: 27 Year
  Sex: Female

DRUGS (5)
  1. RINVOQ [Suspect]
     Active Substance: UPADACITINIB
     Indication: Dermatitis atopic
     Dosage: FORM STRENGTH: 30 MILLIGRAM
     Route: 048
     Dates: start: 2024, end: 202410
  2. PRISTIQ EXTENDED-RELEASE [Concomitant]
     Active Substance: DESVENLAFAXINE SUCCINATE
     Indication: Anxiety
  3. ZYRTEC [Concomitant]
     Active Substance: CETIRIZINE HYDROCHLORIDE
     Indication: Multiple allergies
  4. BUSPIRONE [Concomitant]
     Active Substance: BUSPIRONE HYDROCHLORIDE
     Indication: Anxiety
  5. LABETALOL [Concomitant]
     Active Substance: LABETALOL
     Indication: Hypertension
     Dates: end: 202512

REACTIONS (6)
  - Foetal growth restriction [Recovered/Resolved]
  - Maternal exposure during pregnancy [Unknown]
  - Dermatitis atopic [Recovering/Resolving]
  - Amniotic fluid volume decreased [Recovered/Resolved]
  - Gestational hypertension [Recovered/Resolved]
  - Live birth [Unknown]

NARRATIVE: CASE EVENT DATE: 20241001
